FAERS Safety Report 6773336-7 (Version None)
Quarter: 2010Q2

REPORT INFORMATION
  Report Type: 
  Country: None (occurrence: None)
  Receive Date: 20100614
  Receipt Date: 20100603
  Transmission Date: 20101027
  Serious: Yes (Other)
  Sender: FDA-Public Use
  Company Number: DSA_42777_2010

PATIENT
  Sex: Male

DRUGS (5)
  1. XENAZINE [Suspect]
     Indication: TORTICOLLIS
     Dosage: 25 MG QID ORAL
     Route: 048
     Dates: start: 20091207, end: 20100218
  2. ZOLOFT [Concomitant]
  3. ACTOS [Concomitant]
  4. INSULIN [Concomitant]
  5. METFORMIN [Concomitant]

REACTIONS (8)
  - APATHY [None]
  - FEELING JITTERY [None]
  - GASTROENTERITIS VIRAL [None]
  - HEART RATE INCREASED [None]
  - MALAISE [None]
  - MUSCULOSKELETAL STIFFNESS [None]
  - SUICIDAL IDEATION [None]
  - TOOTH ABSCESS [None]
